FAERS Safety Report 4289551-0 (Version None)
Quarter: 2004Q1

REPORT INFORMATION
  Report Type: 
  Country: None (occurrence: None)
  Receive Date: 20040203
  Receipt Date: 20030410
  Transmission Date: 20041129
  Serious: Yes (Other)
  Sender: FDA-Public Use
  Company Number: 200316351BWH

PATIENT
  Age: 56 Year
  Sex: Female
  Weight: 96.1626 kg

DRUGS (5)
  1. AVELOX [Suspect]
     Indication: CYSTITIS
     Dosage: 400 MG, TOTAL DAILY, ORAL
     Route: 048
     Dates: start: 20030228, end: 20030301
  2. AVELOX [Suspect]
     Indication: URINARY TRACT INFECTION
     Dosage: 400 MG, TOTAL DAILY, ORAL
     Route: 048
     Dates: start: 20030228, end: 20030301
  3. LESCOL ^SANDOZ^ [Concomitant]
  4. ACIPHEX [Concomitant]
  5. FLUCOSAMINE [Concomitant]

REACTIONS (15)
  - AURICULAR SWELLING [None]
  - BLOOD PRESSURE [None]
  - BLOOD PRESSURE INCREASED [None]
  - DRY MOUTH [None]
  - FLUSHING [None]
  - HYPERSENSITIVITY [None]
  - HYPOAESTHESIA [None]
  - HYPOAESTHESIA ORAL [None]
  - NAUSEA [None]
  - OROPHARYNGEAL SWELLING [None]
  - PARAESTHESIA [None]
  - PARAESTHESIA ORAL [None]
  - RASH [None]
  - RASH GENERALISED [None]
  - TREMOR [None]
